FAERS Safety Report 5871848-1 (Version None)
Quarter: 2008Q3

REPORT INFORMATION
  Report Type: 
  Country: None (occurrence: None)
  Receive Date: 20080904
  Receipt Date: 20080904
  Transmission Date: 20090109
  Serious: Yes (Death)
  Sender: FDA-Public Use
  Company Number: None

PATIENT
  Age: 27 Year
  Sex: Male
  Weight: 71.2147 kg

DRUGS (1)
  1. SEROQUEL [Suspect]
     Dosage: 800 MG. TWICE DAILY PO
     Route: 048
     Dates: start: 20031208, end: 20040508

REACTIONS (3)
  - AKATHISIA [None]
  - ANGER [None]
  - COMPLETED SUICIDE [None]
